FAERS Safety Report 23061473 (Version 1)
Quarter: 2023Q4

REPORT INFORMATION
  Report Type: Report from Study
  Country: US (occurrence: US)
  Receive Date: 20231013
  Receipt Date: 20231013
  Transmission Date: 20240110
  Serious: Yes (Other)
  Sender: FDA-Public Use
  Company Number: US-ABBVIE-5446150

PATIENT
  Sex: Female

DRUGS (2)
  1. HUMIRA [Suspect]
     Active Substance: ADALIMUMAB
     Indication: Ankylosing spondylitis
     Dosage: CITRATE FREE, FORM STRENGTH: 40 MILLIGRAM, LAST ADMIN DATE: 2023
     Route: 058
     Dates: start: 20230404
  2. HUMIRA [Suspect]
     Active Substance: ADALIMUMAB
     Dosage: CITRATE FREE, FORM STRENGTH: 40 MILLIGRAM
     Route: 058
     Dates: start: 202309

REACTIONS (4)
  - Tonsillolith [Unknown]
  - Injection site bruising [Unknown]
  - Ankylosing spondylitis [Recovered/Resolved]
  - Vascular injury [Unknown]

NARRATIVE: CASE EVENT DATE: 20230101
